FAERS Safety Report 19639879 (Version 3)
Quarter: 2021Q3

REPORT INFORMATION
  Report Type: Report from Study
  Country: US (occurrence: US)
  Receive Date: 20210729
  Receipt Date: 20210903
  Transmission Date: 20211014
  Serious: Yes (Hospitalization)
  Sender: FDA-Public Use
  Company Number: US-SEATTLE GENETICS-2021SGN03266

PATIENT
  Sex: Female

DRUGS (3)
  1. TUCATINIB [Suspect]
     Active Substance: TUCATINIB
     Dosage: 300 MG, BID
  2. TUCATINIB [Suspect]
     Active Substance: TUCATINIB
     Dosage: UNK
  3. TUCATINIB [Suspect]
     Active Substance: TUCATINIB
     Indication: BREAST CANCER FEMALE
     Dosage: UNK

REACTIONS (11)
  - Fatigue [Unknown]
  - Headache [Unknown]
  - Unevaluable event [Unknown]
  - Dizziness [Unknown]
  - Nausea [Unknown]
  - General physical health deterioration [Unknown]
  - Infection [Unknown]
  - Malaise [Unknown]
  - Asthenia [Unknown]
  - Fall [Unknown]
  - Decreased appetite [Unknown]
